FAERS Safety Report 18404494 (Version 1)
Quarter: 2020Q4

REPORT INFORMATION
  Report Type: Spontaneous
  Country: US (occurrence: US)
  Receive Date: 20201020
  Receipt Date: 20201020
  Transmission Date: 20210114
  Serious: Yes (Hospitalization)
  Sender: FDA-Public Use
  Company Number: None

PATIENT
  Age: 52 Year
  Sex: Male

DRUGS (15)
  1. OPSUMIT [Suspect]
     Active Substance: MACITENTAN
     Indication: PULMONARY ARTERIAL HYPERTENSION
     Route: 048
     Dates: start: 201511
  2. MAGESIUM OXIDE [Concomitant]
  3. HYDROCHLOROTHIAZIDE. [Concomitant]
     Active Substance: HYDROCHLOROTHIAZIDE
  4. KLOR-CON [Concomitant]
     Active Substance: POTASSIUM CHLORIDE
  5. SILDENAFIL. [Concomitant]
     Active Substance: SILDENAFIL
  6. PREGABALIN. [Concomitant]
     Active Substance: PREGABALIN
  7. SPIRONOLACTONE. [Concomitant]
     Active Substance: SPIRONOLACTONE
  8. GLIPIZIDE. [Concomitant]
     Active Substance: GLIPIZIDE
  9. BUMETANIDE. [Concomitant]
     Active Substance: BUMETANIDE
  10. VENTOLIN HFA [Concomitant]
     Active Substance: ALBUTEROL SULFATE
  11. COLCHICINE. [Concomitant]
     Active Substance: COLCHICINE
  12. GABAPENTIN. [Concomitant]
     Active Substance: GABAPENTIN
  13. LISINPRIL [Concomitant]
  14. ATORVASTATIN [Concomitant]
     Active Substance: ATORVASTATIN
  15. ALLOPURINOL. [Concomitant]
     Active Substance: ALLOPURINOL

REACTIONS (3)
  - Dyspnoea [None]
  - Therapy non-responder [None]
  - Weight increased [None]

NARRATIVE: CASE EVENT DATE: 20200916
